FAERS Safety Report 15429059 (Version 10)
Quarter: 2020Q2

REPORT INFORMATION
  Report Type: Spontaneous
  Country: US (occurrence: US)
  Receive Date: 20180926
  Receipt Date: 20200601
  Transmission Date: 20200713
  Serious: Yes (Other)
  Sender: FDA-Public Use
  Company Number: US-PFIZER INC-2018387402

PATIENT
  Age: 53 Year
  Sex: Male

DRUGS (4)
  1. VIAGRA [Concomitant]
     Active Substance: SILDENAFIL CITRATE
     Dosage: UNK
  2. LYRICA [Suspect]
     Active Substance: PREGABALIN
     Indication: BACK PAIN
     Dosage: 300 MG, 1X/DAY (150 MG CAPSULE, TAKE 2 CAPSULES EVERY DAY AT BEDTIME FOR 90 DAYS)
     Route: 048
  3. LYRICA [Suspect]
     Active Substance: PREGABALIN
     Dosage: 2 DF, DAILY(2 CAPS AT NIGHT)
  4. SKELAXIN [METAXALONE] [Concomitant]
     Dosage: UNK

REACTIONS (11)
  - Hypoaesthesia [Unknown]
  - Body height decreased [Unknown]
  - Tremor [Unknown]
  - Parkinson^s disease [Unknown]
  - Visual acuity reduced [Unknown]
  - Head injury [Unknown]
  - Pollakiuria [Unknown]
  - Weight decreased [Unknown]
  - Fall [Unknown]
  - Bone density decreased [Unknown]
  - Fatigue [Unknown]
